FAERS Safety Report 6682948-0 (Version None)
Quarter: 2010Q2

REPORT INFORMATION
  Report Type: 
  Country: None (occurrence: None)
  Receive Date: 20100415
  Receipt Date: 20100406
  Transmission Date: 20101027
  Serious: No
  Sender: FDA-Public Use
  Company Number: US-ROCHE-696762

PATIENT

DRUGS (1)
  1. OSELTAMIVIR PHOSPHATE [Suspect]
     Route: 064
     Dates: start: 20090601

REACTIONS (2)
  - LIVE BIRTH [None]
  - NO ADVERSE EVENT [None]
